FAERS Safety Report 9393100 (Version 1)
Quarter: 2013Q3

REPORT INFORMATION
  Report Type: Spontaneous
  Country: US (occurrence: US)
  Receive Date: 20130710
  Receipt Date: 20130710
  Transmission Date: 20140515
  Serious: Yes (Death)
  Sender: FDA-Public Use
  Company Number: US-SANOFI-AVENTIS-2013SA041185

PATIENT
  Age: 74 Year
  Sex: Female
  Weight: 49.89 kg

DRUGS (1)
  1. ALLEGRA-D [Suspect]
     Indication: SPUTUM INCREASED
     Route: 048

REACTIONS (2)
  - Death [Fatal]
  - Dysphagia [Unknown]
